FAERS Safety Report 5339979-2 (Version None)
Quarter: 2007Q2

REPORT INFORMATION
  Report Type: 
  Country: None (occurrence: None)
  Receive Date: 20070529
  Receipt Date: 20070516
  Transmission Date: 20071010
  Serious: No
  Sender: FDA-Public Use
  Company Number: 163-21880-07050876

PATIENT
  Age: 81 Year
  Sex: Female

DRUGS (2)
  1. REVLIMID [Suspect]
     Indication: MULTIPLE MYELOMA
     Dosage: 20 MG, X28 DAYS, ORAL
     Route: 048
     Dates: start: 20070201
  2. KEFLEX [Suspect]
     Indication: FURUNCLE
     Dates: start: 20070501, end: 20070512

REACTIONS (2)
  - DRUG HYPERSENSITIVITY [None]
  - FURUNCLE [None]
